FAERS Safety Report 11691511 (Version 1)
Quarter: 2015Q4

REPORT INFORMATION
  Report Type: Spontaneous
  Country: KR (occurrence: KR)
  Receive Date: 20151102
  Receipt Date: 20151102
  Transmission Date: 20160304
  Serious: Yes (Hospitalization)
  Sender: FDA-Public Use
  Company Number: PHHY2015KR142064

PATIENT

DRUGS (2)
  1. MYFORTIC [Suspect]
     Active Substance: MYCOPHENOLATE SODIUM
     Indication: PRODUCT USED FOR UNKNOWN INDICATION
     Dosage: UNK
     Route: 065
  2. CERTICAN [Suspect]
     Active Substance: EVEROLIMUS
     Indication: ORGAN TRANSPLANT
     Dosage: 0.75 MG, BID
     Route: 048

REACTIONS (2)
  - Pyrexia [Recovered/Resolved]
  - Interstitial lung disease [Recovered/Resolved]
